FAERS Safety Report 5368324-1 (Version None)
Quarter: 2007Q2

REPORT INFORMATION
  Report Type: 
  Country: None (occurrence: None)
  Receive Date: 20070625
  Receipt Date: 20070618
  Transmission Date: 20071010
  Serious: Yes (Death, Hospitalization, Other)
  Sender: FDA-Public Use
  Company Number: FR-ABBOTT-07P-056-0365931-00

PATIENT
  Sex: Female
  Weight: 2.175 kg

DRUGS (5)
  1. KALETRA [Suspect]
     Indication: BLOOD HIV RNA
     Route: 048
     Dates: start: 20070329, end: 20070329
  2. KALETRA [Suspect]
     Indication: DRUG EXPOSURE DURING PREGNANCY
  3. RITONAVIR [Concomitant]
     Indication: DRUG USE FOR UNKNOWN INDICATION
     Route: 048
  4. LAMIVUDINE [Concomitant]
     Indication: BLOOD HIV RNA
     Route: 048
     Dates: start: 20070329
  5. ABACAVIR [Concomitant]
     Indication: BLOOD HIV RNA
     Dates: start: 20070329

REACTIONS (18)
  - ACCIDENTAL OVERDOSE [None]
  - ANION GAP DECREASED [None]
  - ARRHYTHMIA [None]
  - BLOOD POTASSIUM INCREASED [None]
  - BRADYCARDIA [None]
  - CARDIOGENIC SHOCK [None]
  - DRUG PRESCRIBING ERROR [None]
  - ELECTROENCEPHALOGRAM ABNORMAL [None]
  - HAEMOGLOBIN DECREASED [None]
  - MALAISE [None]
  - NEONATAL RESPIRATORY ARREST [None]
  - NODAL RHYTHM [None]
  - OXYGEN SATURATION DECREASED [None]
  - PREMATURE BABY [None]
  - RENAL FAILURE ACUTE [None]
  - SINOATRIAL BLOCK [None]
  - STAPHYLOCOCCAL SEPSIS [None]
  - VOMITING [None]
